FAERS Safety Report 5240500-8 (Version None)
Quarter: 2007Q1

REPORT INFORMATION
  Report Type: 
  Country: None (occurrence: None)
  Receive Date: 20070219
  Receipt Date: 20070209
  Transmission Date: 20070707
  Serious: Yes (Other)
  Sender: FDA-Public Use
  Company Number: GB-GLAXOSMITHKLINE-B0457885A

PATIENT
  Age: 39 Year
  Sex: Male

DRUGS (3)
  1. BECLOMETHASONE DIPROPIONATE [Suspect]
     Indication: ASTHMA
     Dosage: 2PUFF TWICE PER DAY
     Route: 055
  2. SALMETEROL XINAFOATE [Suspect]
     Indication: ASTHMA
     Dosage: 2PAT TWICE PER DAY
     Route: 055
  3. VENTOLIN [Suspect]
     Indication: ASTHMA
     Dosage: 2PUFF AS REQUIRED
     Route: 055

REACTIONS (1)
  - ASTHMA [None]
